FAERS Safety Report 8123734-4 (Version None)
Quarter: 2012Q1

REPORT INFORMATION
  Report Type: 
  Country: None (occurrence: None)
  Receive Date: 20120208
  Receipt Date: 20120130
  Transmission Date: 20120608
  Serious: Yes (Hospitalization)
  Sender: FDA-Public Use
  Company Number: BR-ASTRAZENECA-2012SE06894

PATIENT
  Age: 73 Year
  Sex: Female
  Weight: 58 kg

DRUGS (6)
  1. DIAMICRON [Concomitant]
     Indication: DIABETES MELLITUS
     Route: 048
  2. NEXIUM [Suspect]
     Indication: GASTRITIS
     Route: 048
     Dates: start: 20090101
  3. IRBESARTAN [Concomitant]
     Indication: HYPERTENSION
     Route: 048
  4. PROCIMAX [Concomitant]
     Indication: DEPRESSION
     Route: 048
  5. VYTORIN [Concomitant]
     Indication: BLOOD CHOLESTEROL INCREASED
     Dosage: 10/20 MG
     Route: 048
  6. GALVUS MET [Concomitant]
     Indication: DIABETES MELLITUS
     Dosage: 50/850 MG
     Route: 048

REACTIONS (1)
  - BREAST MASS [None]
